FAERS Safety Report 23921724 (Version 1)
Quarter: 2024Q2

REPORT INFORMATION
  Report Type: Spontaneous
  Country: JP (occurrence: JP)
  Receive Date: 20240530
  Receipt Date: 20240530
  Transmission Date: 20240716
  Serious: Yes (Other)
  Sender: FDA-Public Use
  Company Number: JP-002147023-NVSJ2024JP006306

PATIENT
  Sex: Male

DRUGS (4)
  1. ENTRESTO [Suspect]
     Active Substance: SACUBITRIL\VALSARTAN
     Indication: Product used for unknown indication
     Dosage: 200 MG
     Route: 048
  2. OLMESARTAN [Suspect]
     Active Substance: OLMESARTAN
     Indication: Product used for unknown indication
     Dosage: 20 MG
     Route: 065
  3. TENELIGLIPTIN HYDROBROMIDE ANHYDROUS [Concomitant]
     Active Substance: TENELIGLIPTIN HYDROBROMIDE ANHYDROUS
     Indication: Product used for unknown indication
     Dosage: 20 MG
     Route: 065
  4. VOGLIBOSE [Concomitant]
     Active Substance: VOGLIBOSE
     Indication: Product used for unknown indication
     Dosage: 0.6 MG
     Route: 065

REACTIONS (11)
  - Renal atrophy [Unknown]
  - Renal artery stenosis [Unknown]
  - Renal artery dissection [Unknown]
  - Azotaemia [Unknown]
  - Extremity necrosis [Unknown]
  - Pallor [Unknown]
  - Hypoaesthesia [Unknown]
  - Hypertension [Unknown]
  - Cyanosis [Unknown]
  - Pain in extremity [Unknown]
  - Contraindicated product administered [Unknown]
